FAERS Safety Report 8506917-0 (Version None)
Quarter: 2012Q3

REPORT INFORMATION
  Report Type: 
  Country: None (occurrence: None)
  Receive Date: 20120712
  Receipt Date: 20120703
  Transmission Date: 20120928
  Serious: Yes (Other)
  Sender: FDA-Public Use
  Company Number: US-BAYER-2012-052238

PATIENT
  Age: 66 Year
  Sex: Female
  Weight: 68.027 kg

DRUGS (8)
  1. SYNTHROID [Concomitant]
  2. OXYCONTIN [Concomitant]
     Dosage: 30 MG, TID
  3. MIRAPEX [Concomitant]
     Dosage: 1.5 MG, BID
  4. DILAUDID [Concomitant]
     Dosage: 4 MG, UNK
  5. POTASSIUM CHLORIDE [Concomitant]
  6. NEXAVAR [Suspect]
     Indication: HEPATIC NEOPLASM MALIGNANT
     Dosage: 200 MG, BID
     Dates: start: 20120517
  7. LASIX [Concomitant]
     Dosage: 40 MG, UNK
  8. ALDACTONE [Concomitant]

REACTIONS (12)
  - MELANOCYTIC NAEVUS [None]
  - STOMATITIS [None]
  - DIPLOPIA [None]
  - LIMB DISCOMFORT [None]
  - OEDEMA PERIPHERAL [None]
  - BLISTER [None]
  - SKIN ULCER [None]
  - SKIN PAPILLOMA [None]
  - ERYTHEMA [None]
  - PAIN IN EXTREMITY [None]
  - GAIT DISTURBANCE [None]
  - RASH [None]
